FAERS Safety Report 8621581-8 (Version None)
Quarter: 2012Q3

REPORT INFORMATION
  Report Type: 
  Country: None (occurrence: None)
  Receive Date: 20120820
  Receipt Date: 20120820
  Transmission Date: 20120928
  Serious: Yes (Life-Threatening)
  Sender: FDA-Public Use
  Company Number: None

PATIENT
  Sex: Male
  Weight: 147 kg

DRUGS (11)
  1. PROPRANOLOL [Suspect]
     Indication: TACHYCARDIA
     Dosage: 50MG EVERY 6HOURS PO
     Route: 048
     Dates: start: 20120718, end: 20120814
  2. TYLENOL [Concomitant]
  3. PROTONIX [Concomitant]
  4. PERIDEX [Concomitant]
  5. HEPARIN [Concomitant]
  6. PRIMAXIN [Concomitant]
  7. ALBUTEROL SULFATE AUTOHALER [Concomitant]
  8. COLACE [Concomitant]
  9. REGULAR INSULIN [Concomitant]
  10. VANCOMYCIN [Concomitant]
  11. MORPHINE [Concomitant]

REACTIONS (5)
  - CARDIAC ARREST [None]
  - RESPIRATORY RATE DECREASED [None]
  - OXYGEN SATURATION DECREASED [None]
  - SINUS BRADYCARDIA [None]
  - RESPIRATORY RATE INCREASED [None]
